FAERS Safety Report 18962326 (Version 1)
Quarter: 2021Q1

REPORT INFORMATION
  Report Type: Spontaneous
  Country: US (occurrence: US)
  Receive Date: 20210303
  Receipt Date: 20210303
  Transmission Date: 20210420
  Serious: Yes (Death, Other)
  Sender: FDA-Public Use
  Company Number: US-SA-2021SA064898

PATIENT
  Age: 20 Year
  Sex: Male
  Weight: 63 kg

DRUGS (1)
  1. UNISOM SLEEPTABS [Suspect]
     Active Substance: DOXYLAMINE SUCCINATE
     Indication: COMPLETED SUICIDE

REACTIONS (3)
  - Intentional overdose [Fatal]
  - Toxicity to various agents [Fatal]
  - Pulmonary congestion [Fatal]
